FAERS Safety Report 8689797 (Version 2)
Quarter: 2014Q1

REPORT INFORMATION
  Report Type: Spontaneous
  Country: US (occurrence: US)
  Receive Date: 20120727
  Receipt Date: 20140113
  Transmission Date: 20141002
  Serious: No
  Sender: FDA-Public Use
  Company Number: US-ASTRAZENECA-2012SE02657

PATIENT
  Age: 30 Year
  Sex: Male

DRUGS (2)
  1. SEROQUEL XR [Suspect]
     Route: 048
     Dates: start: 2012
  2. SEROQUEL XR [Suspect]
     Route: 048

REACTIONS (4)
  - Drug intolerance [Unknown]
  - General physical health deterioration [Unknown]
  - Activities of daily living impaired [Unknown]
  - Lethargy [Unknown]
